FAERS Safety Report 20096436 (Version 1)
Quarter: 2021Q4

REPORT INFORMATION
  Report Type: Spontaneous
  Country: US (occurrence: US)
  Receive Date: 20211122
  Receipt Date: 20211122
  Transmission Date: 20220303
  Serious: No
  Sender: FDA-Public Use
  Company Number: US-PFIZER INC-202101549211

PATIENT
  Age: 48 Year
  Sex: Male

DRUGS (2)
  1. NEURONTIN [Suspect]
     Active Substance: GABAPENTIN
     Dosage: UNK
  2. GASTRODIN [Suspect]
     Active Substance: GASTRODIN
     Dosage: UNK

REACTIONS (3)
  - Memory impairment [Unknown]
  - Bronchitis [Unknown]
  - Fall [Unknown]
